FAERS Safety Report 24997111 (Version 1)
Quarter: 2025Q1

REPORT INFORMATION
  Report Type: Spontaneous
  Country: FR (occurrence: FR)
  Receive Date: 20250221
  Receipt Date: 20250221
  Transmission Date: 20250408
  Serious: Yes (Death)
  Sender: VERTEX
  Company Number: FR-VERTEX PHARMACEUTICALS-2025-002104

PATIENT
  Age: 1 Month
  Sex: Female

DRUGS (1)
  1. ELEXACAFTOR\IVACAFTOR\TEZACAFTOR [Suspect]
     Active Substance: ELEXACAFTOR\IVACAFTOR\TEZACAFTOR
     Indication: Cystic fibrosis
     Dosage: (60 MG IVACAFTOR, 40 MG TEZACAFTOR, 80 MG ELEXACAFTOR), HALF SACHET IN AM
     Route: 048
     Dates: start: 20250204

REACTIONS (2)
  - Death [Fatal]
  - Off label use [Unknown]

NARRATIVE: CASE EVENT DATE: 20250204
